FAERS Safety Report 14740770 (Version 13)
Quarter: 2021Q2

REPORT INFORMATION
  Report Type: Spontaneous
  Country: IL (occurrence: IL)
  Receive Date: 20180410
  Receipt Date: 20210506
  Transmission Date: 20210716
  Serious: Yes (Death, Life-Threatening, Hospitalization, Other)
  Sender: FDA-Public Use
  Company Number: IL-CELGENEUS-ISR-20180210075

PATIENT
  Age: 84 Year
  Sex: Male
  Weight: 49 kg

DRUGS (63)
  1. DEXAMETHASONE ORAL [Suspect]
     Active Substance: DEXAMETHASONE
     Indication: PLASMA CELL MYELOMA
     Dosage: VARIABLE DOSE BETWEEN 8 AND 20MG
     Route: 048
     Dates: start: 20170207, end: 20180213
  2. HYDROCORT [HYDROCORTISONE SODIUM SUCCINATE] [Concomitant]
     Active Substance: HYDROCORTISONE SODIUM SUCCINATE
     Dosage: 150 MILLIGRAM
     Route: 065
     Dates: start: 20180308
  3. TAMIFLU [Concomitant]
     Active Substance: OSELTAMIVIR PHOSPHATE
     Indication: PRODUCT USED FOR UNKNOWN INDICATION
     Route: 048
  4. TAZOCIN [Concomitant]
     Active Substance: PIPERACILLIN SODIUM\TAZOBACTAM SODIUM
     Indication: PRODUCT USED FOR UNKNOWN INDICATION
     Route: 041
  5. NORMALOL [Concomitant]
     Active Substance: ATENOLOL
     Dosage: 480 MG
     Route: 041
     Dates: start: 20170207, end: 20170516
  6. ELIQUIS [Concomitant]
     Active Substance: APIXABAN
     Dosage: 480 MG
     Route: 041
     Dates: start: 20170207, end: 20170516
  7. ELOTUZUMAB. [Concomitant]
     Active Substance: ELOTUZUMAB
     Dosage: 980 MG
     Route: 041
     Dates: start: 20170207, end: 20180213
  8. TAMIFLU [Concomitant]
     Active Substance: OSELTAMIVIR PHOSPHATE
     Dosage: 30 MILLIGRAM
     Route: 065
     Dates: start: 20180306, end: 20180307
  9. ENALADEX [Concomitant]
     Active Substance: ENALAPRIL MALEATE
     Dosage: 480 MG
     Route: 041
     Dates: start: 20170207, end: 20170516
  10. ELIQUIS [Concomitant]
     Active Substance: APIXABAN
     Indication: PRODUCT USED FOR UNKNOWN INDICATION
     Dosage: 5 MILLIGRAM
     Route: 065
     Dates: start: 20170802
  11. SOLU?MEDROL [Concomitant]
     Active Substance: METHYLPREDNISOLONE SODIUM SUCCINATE
     Indication: PRODUCT USED FOR UNKNOWN INDICATION
     Route: 041
  12. NIVOLUMAB [Suspect]
     Active Substance: NIVOLUMAB
     Indication: PLASMA CELL MYELOMA
     Dosage: 480 MG
     Route: 041
     Dates: start: 20170529, end: 20180213
  13. NIVOLUMAB [Suspect]
     Active Substance: NIVOLUMAB
     Dosage: 480 MG
     Route: 041
     Dates: start: 20170207, end: 20170516
  14. HALDOL [Concomitant]
     Active Substance: HALOPERIDOL
     Dosage: .5 MILLIGRAM
     Route: 065
     Dates: start: 20180307, end: 20180307
  15. RESPRIM FORTE [Concomitant]
     Active Substance: SULFAMETHOXAZOLE\TRIMETHOPRIM
     Indication: PRODUCT USED FOR UNKNOWN INDICATION
     Route: 048
  16. AREDIA [Concomitant]
     Active Substance: PAMIDRONATE DISODIUM
     Indication: PRODUCT USED FOR UNKNOWN INDICATION
     Dosage: 60 MILLIGRAM
     Route: 041
     Dates: start: 20140108
  17. KEPPRA [Concomitant]
     Active Substance: LEVETIRACETAM
     Route: 048
  18. CALCIUM+VITAMIN D [Concomitant]
     Active Substance: CALCIUM\VITAMIN D
     Dosage: 480 MG
     Route: 041
     Dates: start: 20170207, end: 20170516
  19. ROSUVASTATIN. [Concomitant]
     Active Substance: ROSUVASTATIN
     Indication: PRODUCT USED FOR UNKNOWN INDICATION
     Dosage: 5 MILLIGRAM
     Route: 065
     Dates: start: 20170614
  20. INSULIN [Concomitant]
     Active Substance: INSULIN NOS
     Indication: PRODUCT USED FOR UNKNOWN INDICATION
     Route: 058
  21. NORMALOL [Concomitant]
     Active Substance: ATENOLOL
     Indication: PRODUCT USED FOR UNKNOWN INDICATION
     Dosage: 25 MILLIGRAM
     Route: 065
     Dates: start: 20100609
  22. PLAVIX [Concomitant]
     Active Substance: CLOPIDOGREL BISULFATE
     Dosage: 480 MG
     Route: 041
     Dates: start: 20170207, end: 20170516
  23. ROSUVASTATIN. [Concomitant]
     Active Substance: ROSUVASTATIN
     Dosage: 480 MG
     Route: 041
     Dates: start: 20170207, end: 20170516
  24. POMALIDOMIDE [Suspect]
     Active Substance: POMALIDOMIDE
     Indication: PLASMA CELL MYELOMA
     Dosage: 4 MG
     Route: 048
     Dates: start: 20170207, end: 20180213
  25. NIVOLUMAB [Suspect]
     Active Substance: NIVOLUMAB
     Route: 041
     Dates: start: 20170207, end: 20180213
  26. FUSID [Concomitant]
     Indication: PRODUCT USED FOR UNKNOWN INDICATION
     Route: 048
  27. FUSID [Concomitant]
     Route: 041
  28. HYDROCORT [HYDROCORTISONE SODIUM SUCCINATE] [Concomitant]
     Active Substance: HYDROCORTISONE SODIUM SUCCINATE
     Indication: PRODUCT USED FOR UNKNOWN INDICATION
     Route: 041
     Dates: start: 20180308
  29. KETAMINE [Concomitant]
     Active Substance: KETAMINE
     Dosage: 500 MILLIGRAM
     Route: 065
     Dates: start: 20180309, end: 20180314
  30. RESPRIM FORTE [Concomitant]
     Active Substance: SULFAMETHOXAZOLE\TRIMETHOPRIM
     Dosage: 800/160 MG
     Route: 065
     Dates: start: 20180312, end: 20180312
  31. ROCEPHINE [Concomitant]
     Active Substance: CEFTRIAXONE SODIUM
     Indication: PRODUCT USED FOR UNKNOWN INDICATION
     Route: 041
  32. KEPPRA [Concomitant]
     Active Substance: LEVETIRACETAM
     Dosage: 1500 MILLIGRAM
     Route: 065
     Dates: start: 20180322
  33. PREDNITONE [Concomitant]
     Dosage: 15 MILLIGRAM
     Route: 065
     Dates: start: 20180319
  34. MICROPIRIN [Concomitant]
     Active Substance: ASPIRIN
     Dosage: 480 MG
     Route: 041
     Dates: start: 20170207, end: 20170516
  35. ACAMOLI [Concomitant]
     Indication: PRODUCT USED FOR UNKNOWN INDICATION
     Route: 054
     Dates: start: 20180306
  36. AZENIL [Concomitant]
     Dosage: 500 MILLIGRAM
     Route: 065
     Dates: start: 20180307, end: 20180309
  37. FUSID [Concomitant]
     Dosage: 40 MILLIGRAM
     Route: 065
     Dates: start: 20180306, end: 20180309
  38. HALDOL [Concomitant]
     Active Substance: HALOPERIDOL
     Indication: PRODUCT USED FOR UNKNOWN INDICATION
     Route: 030
  39. HYDROCORT [HYDROCORTISONE SODIUM SUCCINATE] [Concomitant]
     Active Substance: HYDROCORTISONE SODIUM SUCCINATE
     Dosage: 50 MILLIGRAM
     Route: 065
     Dates: start: 20180307, end: 20180307
  40. KETAMINE [Concomitant]
     Active Substance: KETAMINE
     Indication: PRODUCT USED FOR UNKNOWN INDICATION
     Route: 041
  41. RESPRIM FORTE [Concomitant]
     Active Substance: SULFAMETHOXAZOLE\TRIMETHOPRIM
     Dosage: 160 MILLIGRAM
     Route: 065
     Dates: start: 20131002
  42. VANCOMYCIN [Concomitant]
     Active Substance: VANCOMYCIN
     Indication: PRODUCT USED FOR UNKNOWN INDICATION
     Route: 041
  43. VANCOMYCIN [Concomitant]
     Active Substance: VANCOMYCIN
     Dosage: 1000 MILLIGRAM
     Route: 065
     Dates: start: 20180309, end: 20180309
  44. KEPPRA [Concomitant]
     Active Substance: LEVETIRACETAM
     Indication: PRODUCT USED FOR UNKNOWN INDICATION
     Route: 041
  45. ACYCLO?V [Concomitant]
     Indication: PRODUCT USED FOR UNKNOWN INDICATION
     Dosage: 400 MILLIGRAM
     Route: 065
     Dates: start: 20131002
  46. MICROPIRIN [Concomitant]
     Active Substance: ASPIRIN
     Indication: PRODUCT USED FOR UNKNOWN INDICATION
     Dosage: 100 MILLIGRAM
     Route: 065
     Dates: start: 20160508
  47. PLAVIX [Concomitant]
     Active Substance: CLOPIDOGREL BISULFATE
     Indication: PRODUCT USED FOR UNKNOWN INDICATION
     Dosage: 75 MILLIGRAM
     Route: 065
     Dates: start: 20170719
  48. APIDRA [Concomitant]
     Active Substance: INSULIN GLULISINE
     Indication: PRODUCT USED FOR UNKNOWN INDICATION
     Route: 058
     Dates: start: 20180311
  49. ROCEPHINE [Concomitant]
     Active Substance: CEFTRIAXONE SODIUM
     Dosage: 2 GRAM
     Route: 065
     Dates: start: 20180306, end: 20180309
  50. TAZOCIN [Concomitant]
     Active Substance: PIPERACILLIN SODIUM\TAZOBACTAM SODIUM
     Dosage: 18 GRAM
     Route: 065
     Dates: start: 20180309, end: 20180321
  51. PREDNITONE [Concomitant]
     Indication: PRODUCT USED FOR UNKNOWN INDICATION
     Route: 048
  52. ACYCLO?V [Concomitant]
     Dosage: 480 MG
     Route: 041
     Dates: start: 20170207, end: 20170516
  53. CALCIUM+VITAMIN D [Concomitant]
     Active Substance: CALCIUM\VITAMIN D
     Indication: PRODUCT USED FOR UNKNOWN INDICATION
     Dosage: 600 MILLIGRAM
     Route: 065
     Dates: start: 20170302
  54. CARDILOC [Concomitant]
     Active Substance: BISOPROLOL FUMARATE
     Indication: PRODUCT USED FOR UNKNOWN INDICATION
     Dosage: 1.25 MILLIGRAM
     Route: 065
     Dates: start: 20170730
  55. CARDILOC [Concomitant]
     Active Substance: BISOPROLOL FUMARATE
     Dosage: 480 MG
     Route: 041
     Dates: start: 20170207, end: 20170516
  56. ELOTUZUMAB. [Concomitant]
     Active Substance: ELOTUZUMAB
     Indication: PLASMA CELL MYELOMA
     Dosage: 980 MG
     Route: 041
     Dates: start: 20170207, end: 20170516
  57. ELOTUZUMAB. [Concomitant]
     Active Substance: ELOTUZUMAB
     Dosage: 980 MG
     Route: 041
     Dates: start: 20170529
  58. AZENIL [Concomitant]
     Indication: PRODUCT USED FOR UNKNOWN INDICATION
     Route: 048
  59. APIDRA [Concomitant]
     Active Substance: INSULIN GLULISINE
     Dosage: 18 UNIT
     Route: 065
     Dates: start: 20180311
  60. RESPRIM FORTE [Concomitant]
     Active Substance: SULFAMETHOXAZOLE\TRIMETHOPRIM
     Dosage: 800/160 MD
     Route: 065
     Dates: start: 20180308, end: 20180308
  61. JANUVIA [Concomitant]
     Active Substance: SITAGLIPTIN PHOSPHATE
     Indication: PRODUCT USED FOR UNKNOWN INDICATION
     Route: 065
     Dates: start: 20170802
  62. NOVONORM [Concomitant]
     Active Substance: REPAGLINIDE
     Indication: PRODUCT USED FOR UNKNOWN INDICATION
     Dosage: 2 MILLIGRAM
     Route: 041
     Dates: start: 20170730
  63. ENALADEX [Concomitant]
     Active Substance: ENALAPRIL MALEATE
     Indication: PRODUCT USED FOR UNKNOWN INDICATION
     Dosage: 5 MILLIGRAM
     Route: 065
     Dates: start: 20080925

REACTIONS (4)
  - Sepsis [Fatal]
  - Hyponatraemia [Recovered/Resolved with Sequelae]
  - Pneumonia [Not Recovered/Not Resolved]
  - Encephalitis [Not Recovered/Not Resolved]

NARRATIVE: CASE EVENT DATE: 20180222
